FAERS Safety Report 10072046 (Version 1)
Quarter: 2014Q2

REPORT INFORMATION
  Report Type: Spontaneous
  Country: US (occurrence: None)
  Receive Date: 20140410
  Receipt Date: 20140410
  Transmission Date: 20141212
  Serious: Yes (Other)
  Sender: FDA-Public Use
  Company Number: None

PATIENT
  Age: 65 Day
  Sex: Female
  Weight: 81.65 kg

DRUGS (6)
  1. MORPHINE SULFATE [Suspect]
     Indication: PAIN
     Dosage: 2 PER DAY BY MOUTH
     Route: 048
     Dates: start: 20131205, end: 20131223
  2. MORPHINE SULFATE [Suspect]
     Indication: INJURY
     Dosage: 2 PER DAY BY MOUTH
     Route: 048
     Dates: start: 20131205, end: 20131223
  3. MORPHINE SULFATE [Suspect]
     Indication: ROAD TRAFFIC ACCIDENT
     Dosage: 2 PER DAY BY MOUTH
     Route: 048
     Dates: start: 20131205, end: 20131223
  4. MS CONTIN [Concomitant]
  5. CITRACAL CALCIUM CITRATE+ D [Concomitant]
  6. STOOL SOFTENER [Concomitant]

REACTIONS (4)
  - Drug ineffective [None]
  - Product quality issue [None]
  - Rash [None]
  - Product substitution issue [None]
